FAERS Safety Report 9347843 (Version 2)
Quarter: 2013Q2

REPORT INFORMATION
  Report Type: Spontaneous
  Country: US (occurrence: US)
  Receive Date: 20130614
  Receipt Date: 20130625
  Transmission Date: 20140414
  Serious: No
  Sender: FDA-Public Use
  Company Number: US-B.I. PHARMACEUTICALS,INC./RIDGEFIELD-2013-BI-16325BP

PATIENT
  Age: 58 Year
  Sex: Female

DRUGS (1)
  1. SPIRIVA [Suspect]
     Dosage: 18 MCG
     Route: 055
     Dates: start: 2005

REACTIONS (2)
  - Fall [Recovered/Resolved]
  - Upper limb fracture [Not Recovered/Not Resolved]
